FAERS Safety Report 8816834 (Version 1)
Quarter: 2012Q4

REPORT INFORMATION
  Report Type: Spontaneous
  Country: US (occurrence: None)
  Receive Date: 20121002
  Receipt Date: 20121002
  Transmission Date: 20130627
  Serious: Yes (Other)
  Sender: FDA-Public Use
  Company Number: None

PATIENT
  Age: 33 Year
  Sex: Female
  Weight: 78.02 kg

DRUGS (2)
  1. ESCITALOPRAM [Suspect]
     Indication: ATYPICAL DEPRESSIVE DISORDER
     Dosage: Escitalopram 20mg once daily po
     Route: 048
     Dates: start: 20110906, end: 20120506
  2. CITALOPRAM [Suspect]
     Indication: GENERALIZED ANXIETY DISORDER
     Dosage: Citalopram 40mg once daily po
     Route: 048
     Dates: start: 20110906, end: 20120506

REACTIONS (3)
  - Depression [None]
  - Anxiety [None]
  - Fatigue [None]
